FAERS Safety Report 5372786-3 (Version None)
Quarter: 2007Q2

REPORT INFORMATION
  Report Type: 
  Country: None (occurrence: None)
  Receive Date: 20070627
  Receipt Date: 20070620
  Transmission Date: 20071010
  Serious: Yes (Other)
  Sender: FDA-Public Use
  Company Number: US-PFIZER INC-2007043536

PATIENT
  Sex: Female
  Weight: 59 kg

DRUGS (3)
  1. DETROL [Suspect]
     Indication: HYPERTONIC BLADDER
     Route: 048
  2. PROTONIX [Concomitant]
  3. ACTONEL [Concomitant]

REACTIONS (1)
  - INTRAOCULAR PRESSURE INCREASED [None]
